FAERS Safety Report 5164128-3 (Version None)
Quarter: 2006Q4

REPORT INFORMATION
  Report Type: 
  Country: None (occurrence: None)
  Receive Date: 20061124
  Receipt Date: 20061115
  Transmission Date: 20070319
  Serious: Yes (Death, Hospitalization, Other)
  Sender: FDA-Public Use
  Company Number: 163-21880-06100446

PATIENT
  Age: 95 Year
  Sex: Male
  Weight: 68.0396 kg

DRUGS (10)
  1. REVLIMID [Suspect]
     Indication: MYELODYSPLASTIC SYNDROME
     Dosage: 10 MG, 1 IN 1 D, ORAL
     Route: 048
     Dates: start: 20060912, end: 20060929
  2. REVLIMID [Suspect]
     Indication: MYELODYSPLASTIC SYNDROME
     Dosage: 10 MG, 1 IN 1 D, ORAL
     Route: 048
     Dates: start: 20061001, end: 20061010
  3. MULTIVITAMIN [Concomitant]
  4. PROTONIX [Concomitant]
  5. DIGOXIN [Concomitant]
  6. ASPIRIN [Concomitant]
  7. FOLIC ACID [Concomitant]
  8. POTASSIUM (POTASSIUM) [Concomitant]
  9. LASIX [Concomitant]
  10. TYLENOL [Concomitant]

REACTIONS (5)
  - DISEASE PROGRESSION [None]
  - DYSPHONIA [None]
  - DYSPNOEA [None]
  - FATIGUE [None]
  - MYELODYSPLASTIC SYNDROME [None]
